FAERS Safety Report 9010462 (Version 1)
Quarter: 2013Q1

REPORT INFORMATION
  Report Type: Spontaneous
  Country: FR (occurrence: FR)
  Receive Date: 20130109
  Receipt Date: 20130109
  Transmission Date: 20140127
  Serious: Yes (Hospitalization, Other)
  Sender: FDA-Public Use
  Company Number: FR-009507513-1301FRA000663

PATIENT
  Age: 45 Year
  Sex: Female

DRUGS (5)
  1. EMEND [Suspect]
     Indication: PREMEDICATION
     Dosage: 80 MG, ONCE
     Route: 048
     Dates: start: 20120217, end: 20120217
  2. EMEND [Suspect]
     Dosage: 125 MG, ONCE
     Route: 048
     Dates: start: 20120217, end: 20120217
  3. ZOPHREN [Suspect]
     Indication: PREMEDICATION
     Dosage: 8 MG/ 4 ML
     Route: 042
     Dates: start: 20120217, end: 20120217
  4. METHYLPREDNISOLONE [Suspect]
     Indication: PREMEDICATION
     Dosage: 60 MG, ONCE
     Route: 042
     Dates: start: 20120217, end: 20120217
  5. CISPLATIN [Suspect]

REACTIONS (1)
  - Pancytopenia [Recovered/Resolved]
